FAERS Safety Report 25910235 (Version 1)
Quarter: 2025Q4

REPORT INFORMATION
  Report Type: Spontaneous
  Country: US (occurrence: US)
  Receive Date: 20251012
  Receipt Date: 20251012
  Transmission Date: 20260117
  Serious: No
  Sender: SANOFI AVENTIS
  Company Number: US-SA-2025SA301577

PATIENT
  Sex: Male

DRUGS (11)
  1. DUPIXENT [Suspect]
     Active Substance: DUPILUMAB
     Indication: Dermatitis
     Dosage: 300 MG, QOW
     Route: 058
  2. OLMESARTAN [Concomitant]
     Active Substance: OLMESARTAN
  3. NEBIVOLOL [Concomitant]
     Active Substance: NEBIVOLOL
  4. Methylfolat [Concomitant]
  5. KLOR-CON M20 [Concomitant]
     Active Substance: POTASSIUM CHLORIDE
  6. GABAPENTIN [Concomitant]
     Active Substance: GABAPENTIN
  7. FUROSEMIDE [Concomitant]
     Active Substance: FUROSEMIDE
  8. FOLIC ACID [Concomitant]
     Active Substance: FOLIC ACID
  9. COLCHICINE [Concomitant]
     Active Substance: COLCHICINE
  10. CLOBETASOL [Concomitant]
     Active Substance: CLOBETASOL
  11. ATORVASTATIN [Concomitant]
     Active Substance: ATORVASTATIN

REACTIONS (2)
  - Dry eye [Unknown]
  - Product use in unapproved indication [Unknown]
